FAERS Safety Report 6450753-6 (Version None)
Quarter: 2009Q4

REPORT INFORMATION
  Report Type: 
  Country: None (occurrence: None)
  Receive Date: 20091123
  Receipt Date: 20091113
  Transmission Date: 20100525
  Serious: Yes (Other)
  Sender: FDA-Public Use
  Company Number: US-ELI_LILLY_AND_COMPANY-US200911004352

PATIENT
  Age: 46 Year
  Sex: Male

DRUGS (1)
  1. GEMZAR [Suspect]
     Dosage: 1000 MG/M2, BIMONTHLY

REACTIONS (2)
  - EXTREMITY NECROSIS [None]
  - OEDEMA [None]
